FAERS Safety Report 19589390 (Version 2)
Quarter: 2021Q3

REPORT INFORMATION
  Report Type: Report from Study
  Country: NL (occurrence: NL)
  Receive Date: 20210721
  Receipt Date: 20210819
  Transmission Date: 20211014
  Serious: Yes (Hospitalization, Other)
  Sender: FDA-Public Use
  Company Number: NL-AMGEN-NLDSL2021079360

PATIENT
  Age: 76 Year
  Sex: Male

DRUGS (4)
  1. NPLATE [Suspect]
     Active Substance: ROMIPLOSTIM
     Indication: IMMUNE THROMBOCYTOPENIA
     Dosage: 500 MICROGRAM, QWK
     Route: 058
  2. NPLATE [Suspect]
     Active Substance: ROMIPLOSTIM
     Dosage: 500 MICROGRAM, QWK
     Route: 058
  3. NPLATE [Suspect]
     Active Substance: ROMIPLOSTIM
     Dosage: 500 MICROGRAM, QWK
     Route: 058
  4. NPLATE [Suspect]
     Active Substance: ROMIPLOSTIM
     Dosage: 500 MICROGRAM, QWK
     Route: 058

REACTIONS (3)
  - Off label use [Recovered/Resolved]
  - Platelet count decreased [Recovered/Resolved]
  - Weight decreased [Recovered/Resolved]

NARRATIVE: CASE EVENT DATE: 20210214
